FAERS Safety Report 5004818-6 (Version None)
Quarter: 2006Q1

REPORT INFORMATION
  Report Type: 
  Country: None (occurrence: None)
  Receive Date: 20060321
  Receipt Date: 20051221
  Transmission Date: 20060701
  Serious: No
  Sender: FDA-Public Use
  Company Number: YPA20060011

PATIENT
  Age: 67 Year
  Sex: Male
  Weight: 90.9 kg

DRUGS (2)
  1. VESICARE [Suspect]
     Dosage: SEE IMAGE
     Route: 048
     Dates: start: 20051201, end: 20051201
  2. VESICARE [Suspect]
     Dosage: SEE IMAGE
     Route: 048
     Dates: start: 20051219

REACTIONS (1)
  - BLOOD GLUCOSE INCREASED [None]
